FAERS Safety Report 4442955-5 (Version None)
Quarter: 2004Q3

REPORT INFORMATION
  Report Type: 
  Country: None (occurrence: None)
  Receive Date: 20040907
  Receipt Date: 20040907
  Transmission Date: 20050211
  Serious: Yes (Other)
  Sender: FDA-Public Use
  Company Number: None

PATIENT
  Sex: Female
  Weight: 61.2356 kg

DRUGS (1)
  1. WELLBUTRIN XL [Suspect]
     Indication: DEPRESSION
     Dosage: 150MG  ONCE DAILY  ORAL
     Route: 048
     Dates: start: 20040823, end: 20040902

REACTIONS (13)
  - CONTUSION [None]
  - DEHYDRATION [None]
  - DISTURBANCE IN ATTENTION [None]
  - DIZZINESS [None]
  - DYSGEUSIA [None]
  - HEADACHE [None]
  - HOT FLUSH [None]
  - IMPAIRED WORK ABILITY [None]
  - INFLUENZA LIKE ILLNESS [None]
  - NAUSEA [None]
  - RASH [None]
  - TREMOR [None]
  - VOMITING [None]
